FAERS Safety Report 16500443 (Version 1)
Quarter: 2019Q3

REPORT INFORMATION
  Report Type: Spontaneous
  Country: US (occurrence: US)
  Receive Date: 20190628
  Receipt Date: 20190628
  Transmission Date: 20191004
  Serious: Yes (Other)
  Sender: FDA-Public Use
  Company Number: None

PATIENT
  Age: 52 Year
  Sex: Male
  Weight: 85.05 kg

DRUGS (1)
  1. SOLCO GENERIC FOR CYMBALTA 60MG CAPSULES [Suspect]
     Active Substance: DULOXETINE HYDROCHLORIDE
     Indication: DEPRESSION
     Dosage: ?          QUANTITY:30 CAPSULE(S);?
     Route: 048
     Dates: start: 20190611

REACTIONS (5)
  - Manufacturing materials issue [None]
  - Withdrawal syndrome [None]
  - Product substitution issue [None]
  - Product complaint [None]
  - Sensory disturbance [None]

NARRATIVE: CASE EVENT DATE: 20190628
